FAERS Safety Report 8445610-X (Version None)
Quarter: 2012Q2

REPORT INFORMATION
  Report Type: 
  Country: None (occurrence: None)
  Receive Date: 20120618
  Receipt Date: 20120613
  Transmission Date: 20120825
  Serious: No
  Sender: FDA-Public Use
  Company Number: US-PFIZER INC-2012143500

PATIENT
  Sex: Female

DRUGS (3)
  1. MOBIC [Concomitant]
     Indication: INFLAMMATION
     Dosage: 15 MG, DAILY
     Dates: end: 20120601
  2. QUININE [Concomitant]
     Indication: MUSCLE SPASMS
     Dosage: 150 MG, DAILY
  3. LYRICA [Suspect]
     Indication: VASCULAR STENOSIS
     Dosage: 150 MG, DAILY
     Dates: start: 20120611

REACTIONS (4)
  - MUSCULOSKELETAL STIFFNESS [None]
  - SOMNOLENCE [None]
  - DIZZINESS [None]
  - MUSCLE SPASMS [None]
